FAERS Safety Report 4379929-9 (Version None)
Quarter: 2004Q2

REPORT INFORMATION
  Report Type: 
  Country: None (occurrence: None)
  Receive Date: 20040614
  Receipt Date: 20040603
  Transmission Date: 20050107
  Serious: Yes (Hospitalization)
  Sender: FDA-Public Use
  Company Number: 04P-013-0262744-00

PATIENT
  Age: 26 Year
  Sex: Female

DRUGS (2)
  1. BIAXIN [Suspect]
     Indication: BRONCHITIS
  2. ANTIDEPRESSANTS [Concomitant]

REACTIONS (2)
  - ABDOMINAL PAIN UPPER [None]
  - HEPATITIS [None]
